FAERS Safety Report 5975133-9 (Version None)
Quarter: 2008Q4

REPORT INFORMATION
  Report Type: 
  Country: None (occurrence: None)
  Receive Date: 20081202
  Receipt Date: 20081120
  Transmission Date: 20090506
  Serious: Yes (Other)
  Sender: FDA-Public Use
  Company Number: GB-SOLVAY-00308004414

PATIENT
  Age: 72 Year
  Sex: Female

DRUGS (7)
  1. METFORMIN MR [Concomitant]
     Indication: DIABETES MELLITUS
     Dosage: DAILY DOSE: 1000 MILLIGRAM(S)
     Route: 048
  2. CREON [Suspect]
     Indication: DRUG USE FOR UNKNOWN INDICATION
     Dosage: DAILY DOSE: 1 CAPSULE 3 TIMES DAILY UP TO 5 TIMES DAILY
     Route: 048
     Dates: start: 20040101
  3. CREON [Suspect]
     Dosage: DAILY DOSE:  UNKNOWN, GP HAS HAD DOSE ADJUSTED
     Route: 065
  4. ATENOLOL [Concomitant]
     Indication: DRUG USE FOR UNKNOWN INDICATION
     Dosage: DAILY DOSE: 50 MILLIGRAM(S)
     Route: 048
  5. RAMIPRIL [Concomitant]
     Indication: DRUG USE FOR UNKNOWN INDICATION
     Dosage: DAILY DOSE: 10 MILLIGRAM(S)
     Route: 048
  6. SIMVASTATIN [Concomitant]
     Indication: DRUG USE FOR UNKNOWN INDICATION
     Dosage: DAILY DOSE: 25 MILLIGRAM(S)
     Route: 048
  7. OMEPRAZOLE [Concomitant]
     Indication: DRUG USE FOR UNKNOWN INDICATION
     Dosage: DAILY DOSE: 20 MILLIGRAM(S)
     Route: 048

REACTIONS (2)
  - DIARRHOEA [None]
  - VULVOVAGINAL PRURITUS [None]
